FAERS Safety Report 24603589 (Version 1)
Quarter: 2024Q4

REPORT INFORMATION
  Report Type: Spontaneous
  Country: US (occurrence: US)
  Receive Date: 20241111
  Receipt Date: 20241111
  Transmission Date: 20250115
  Serious: Yes (Death, Other)
  Sender: SANDOZ
  Company Number: US-SANDOZ-SDZ2024US093846

PATIENT
  Sex: Female

DRUGS (1)
  1. ZARXIO [Suspect]
     Active Substance: FILGRASTIM-SNDZ
     Indication: Follicular lymphoma
     Dosage: 480 UG, QD
     Route: 058
     Dates: start: 20240718, end: 20240830

REACTIONS (2)
  - Follicular lymphoma [Fatal]
  - Disease progression [Fatal]
